FAERS Safety Report 18484000 (Version 2)
Quarter: 2021Q1

REPORT INFORMATION
  Report Type: Spontaneous
  Country: FR (occurrence: FR)
  Receive Date: 20201109
  Receipt Date: 20210221
  Transmission Date: 20210419
  Serious: Yes (Other)
  Sender: FDA-Public Use
  Company Number: FR-ROCHE-2706478

PATIENT
  Age: 76 Year
  Sex: Female
  Weight: 71 kg

DRUGS (2)
  1. XELODA [Suspect]
     Active Substance: CAPECITABINE
     Indication: BREAST CANCER METASTATIC
  2. XELODA [Suspect]
     Active Substance: CAPECITABINE
     Indication: BONE CANCER
     Route: 048
     Dates: start: 20200824, end: 20200925

REACTIONS (9)
  - Off label use [Unknown]
  - Weight decreased [Not Recovered/Not Resolved]
  - Tooth infection [Recovered/Resolved]
  - Intentional product use issue [Unknown]
  - Skin discolouration [Not Recovered/Not Resolved]
  - Gait disturbance [Recovered/Resolved]
  - Chest pain [Unknown]
  - Toxic skin eruption [Recovered/Resolved]
  - Rash [Recovered/Resolved]

NARRATIVE: CASE EVENT DATE: 20200929
